FAERS Safety Report 9561909 (Version 2)
Quarter: 2013Q4

REPORT INFORMATION
  Report Type: Spontaneous
  Country: US (occurrence: US)
  Receive Date: 20130927
  Receipt Date: 20131115
  Transmission Date: 20140711
  Serious: No
  Sender: FDA-Public Use
  Company Number: US-BIOGENIDEC-2013BI064127

PATIENT
  Age: 43 Year
  Sex: Female

DRUGS (5)
  1. TECFIDERA [Suspect]
     Indication: MULTIPLE SCLEROSIS
     Route: 048
     Dates: start: 20130619
  2. ALBUTEROL SULFATE ER [Concomitant]
  3. BACLOFEN [Concomitant]
  4. BENTHANECHOL CHLORIDE [Concomitant]
  5. CLONAZEPAM [Concomitant]

REACTIONS (1)
  - Headache [Unknown]
